FAERS Safety Report 4655525-0 (Version None)
Quarter: 2005Q2

REPORT INFORMATION
  Report Type: 
  Country: None (occurrence: None)
  Receive Date: 20050505
  Receipt Date: 20050423
  Transmission Date: 20051028
  Serious: Yes (Other)
  Sender: FDA-Public Use
  Company Number: 2005038086

PATIENT
  Age: 26 Year
  Sex: Female

DRUGS (3)
  1. ZITHROMAX [Suspect]
     Indication: UPPER RESPIRATORY TRACT INFECTION
     Dosage: (250 MG) ORAL
     Route: 048
     Dates: start: 20050214, end: 20050218
  2. EPINEPHRINE [Suspect]
     Indication: URTICARIA
     Dosage: (ONCE), SUBCUTANEOUS
     Route: 058
     Dates: start: 20050220, end: 20050220
  3. ORAL CONTRACEPTIVE NOS (ORAL CONTRACEPTIVE NOS) [Concomitant]

REACTIONS (13)
  - ARTHRALGIA [None]
  - C-REACTIVE PROTEIN INCREASED [None]
  - CHEST DISCOMFORT [None]
  - EPSTEIN-BARR VIRUS SEROLOGY POSITIVE [None]
  - ERYTHEMA MULTIFORME [None]
  - INFECTIOUS MONONUCLEOSIS [None]
  - JOINT SWELLING [None]
  - LABORATORY TEST ABNORMAL [None]
  - NAUSEA [None]
  - RASH ERYTHEMATOUS [None]
  - THROAT TIGHTNESS [None]
  - URTICARIA GENERALISED [None]
  - VIRUS SEROLOGY TEST POSITIVE [None]
